FAERS Safety Report 5591498-4 (Version None)
Quarter: 2008Q1

REPORT INFORMATION
  Report Type: 
  Country: None (occurrence: None)
  Receive Date: 20080111
  Receipt Date: 20071228
  Transmission Date: 20080703
  Serious: Yes (Death)
  Sender: FDA-Public Use
  Company Number: US022003

PATIENT
  Age: 23 Year
  Sex: Female
  Weight: 61.7 kg

DRUGS (7)
  1. FENTANYL [Suspect]
     Dosage: ONCE
  2. HYDROCODONE BITARTRATE [Suspect]
     Dosage: ONCE
  3. DIAZEPAM [Suspect]
     Dosage: ONCE
  4. COCAINE [Concomitant]
  5. HYDROMORPHONE HCL [Concomitant]
  6. DIHYDROCODEINE [Concomitant]
  7. ACETAMINOPHEN [Concomitant]

REACTIONS (3)
  - DRUG ABUSER [None]
  - DRUG TOXICITY [None]
  - MULTIPLE DRUG OVERDOSE ACCIDENTAL [None]
